FAERS Safety Report 21452278 (Version 3)
Quarter: 2023Q1

REPORT INFORMATION
  Report Type: Spontaneous
  Country: JP (occurrence: JP)
  Receive Date: 20221013
  Receipt Date: 20230130
  Transmission Date: 20230418
  Serious: Yes (Other)
  Sender: FDA-Public Use
  Company Number: JP-BRISTOL-MYERS SQUIBB COMPANY-2022-117547

PATIENT
  Age: 55 Year
  Sex: Male
  Weight: 90.7 kg

DRUGS (6)
  1. YERVOY [Suspect]
     Active Substance: IPILIMUMAB
     Indication: Renal cell carcinoma
     Dosage: ONE TIME DOSE
     Route: 041
     Dates: start: 20220425, end: 20220627
  2. OPDIVO [Suspect]
     Active Substance: NIVOLUMAB
     Indication: Renal cell carcinoma
     Dosage: ONE TIME DOSE
     Route: 041
     Dates: start: 20220425, end: 20220627
  3. OPDIVO [Suspect]
     Active Substance: NIVOLUMAB
     Dosage: ONE TIME DOSE
     Route: 041
     Dates: start: 20220720
  4. AZELNIDIPINE\OLMESARTAN MEDOXOMIL [Concomitant]
     Active Substance: AZELNIDIPINE\OLMESARTAN MEDOXOMIL
     Indication: Product used for unknown indication
  5. EZETIMIBE [Concomitant]
     Active Substance: EZETIMIBE
     Indication: Product used for unknown indication
  6. PRAVASTATIN SODIUM [Concomitant]
     Active Substance: PRAVASTATIN SODIUM
     Indication: Product used for unknown indication

REACTIONS (3)
  - Fulminant type 1 diabetes mellitus [Recovering/Resolving]
  - Diabetic ketoacidosis [Unknown]
  - Acute kidney injury [Recovering/Resolving]

NARRATIVE: CASE EVENT DATE: 20220907
